FAERS Safety Report 21970949 (Version 1)
Quarter: 2023Q1

REPORT INFORMATION
  Report Type: Spontaneous
  Country: US (occurrence: US)
  Receive Date: 20230209
  Receipt Date: 20230209
  Transmission Date: 20230418
  Serious: Yes (Life-Threatening, Hospitalization, Other)
  Sender: FDA-Public Use
  Company Number: US-drreddys-SPO/USA/23/0160703

PATIENT
  Age: 53 Year
  Sex: Female

DRUGS (1)
  1. PROPOFOL [Suspect]
     Active Substance: PROPOFOL
     Indication: Anaesthesia
     Dosage: SINGLE 200 MG DOSE OF PROPOFOL DURING SURGERY

REACTIONS (7)
  - Metabolic encephalopathy [Recovering/Resolving]
  - Pancreatic abscess [Recovering/Resolving]
  - Pancreatitis necrotising [Recovering/Resolving]
  - Pneumonia [Recovering/Resolving]
  - Acute respiratory failure [Recovering/Resolving]
  - Multiple organ dysfunction syndrome [Recovering/Resolving]
  - Sepsis [Recovering/Resolving]
